FAERS Safety Report 17291866 (Version 1)
Quarter: 2020Q1

REPORT INFORMATION
  Report Type: Report from Study
  Country: MX (occurrence: MX)
  Receive Date: 20200121
  Receipt Date: 20200121
  Transmission Date: 20200409
  Serious: Yes (Hospitalization)
  Sender: FDA-Public Use
  Company Number: MX-BAYER-2019-217891

PATIENT
  Age: 54 Year
  Sex: Female

DRUGS (1)
  1. ADEMPAS [Suspect]
     Active Substance: RIOCIGUAT
     Indication: PULMONARY HYPERTENSION
     Dosage: UNK
     Dates: start: 20191031

REACTIONS (4)
  - Syncope [Recovered/Resolved with Sequelae]
  - Oedema peripheral [Not Recovered/Not Resolved]
  - Cardiac discomfort [Not Recovered/Not Resolved]
  - Somnolence [Not Recovered/Not Resolved]

NARRATIVE: CASE EVENT DATE: 20191120
